FAERS Safety Report 5271105-0 (Version None)
Quarter: 2007Q1

REPORT INFORMATION
  Report Type: 
  Country: None (occurrence: None)
  Receive Date: 20070321
  Receipt Date: 20070313
  Transmission Date: 20070707
  Serious: Yes (Other)
  Sender: FDA-Public Use
  Company Number: 2007UW05004

PATIENT
  Age: 52 Year
  Sex: Female
  Weight: 71 kg

DRUGS (3)
  1. NOLVADEX [Suspect]
     Indication: BREAST CANCER
     Route: 048
     Dates: start: 20060501, end: 20060601
  2. NOLVADEX [Suspect]
     Route: 048
     Dates: start: 20060601
  3. NOLVADEX [Suspect]
     Indication: BREAST CANCER
     Route: 048
     Dates: start: 20060601, end: 20060601

REACTIONS (4)
  - HEADACHE [None]
  - HOT FLUSH [None]
  - LABYRINTHITIS [None]
  - WEIGHT INCREASED [None]
